FAERS Safety Report 24362440 (Version 5)
Quarter: 2025Q2

REPORT INFORMATION
  Report Type: Spontaneous
  Country: US (occurrence: US)
  Receive Date: 20240925
  Receipt Date: 20250402
  Transmission Date: 20250716
  Serious: No
  Sender: PFIZER
  Company Number: US-PFIZER INC-202400251257

PATIENT
  Age: 15 Year
  Sex: Male
  Weight: 66.22 kg

DRUGS (1)
  1. GENOTROPIN [Suspect]
     Active Substance: SOMATROPIN
     Indication: Growth hormone deficiency
     Dosage: 1 MG, DAILY (ALSO REPORTED 1.8 MG, DAILY)
     Dates: start: 202303

REACTIONS (5)
  - Device use issue [Unknown]
  - Liquid product physical issue [Unknown]
  - Device mechanical issue [Unknown]
  - Device malfunction [Unknown]
  - Incorrect dose administered by device [Unknown]
